FAERS Safety Report 25233537 (Version 3)
Quarter: 2025Q2

REPORT INFORMATION
  Report Type: Report from Study
  Country: US (occurrence: US)
  Receive Date: 20250424
  Receipt Date: 20250521
  Transmission Date: 20250716
  Serious: Yes (Other)
  Sender: SUNOVION
  Company Number: US-SUMITOMO PHARMA SWITZERLAND GMBH-2025SPA003957

PATIENT

DRUGS (2)
  1. ORGOVYX [Suspect]
     Active Substance: RELUGOLIX
     Indication: Prostate cancer
     Route: 048
  2. ORGOVYX [Suspect]
     Active Substance: RELUGOLIX
     Dosage: 120 MG, QD
     Route: 048
     Dates: start: 20250305

REACTIONS (10)
  - Hallucination [Unknown]
  - Cardiac failure [Unknown]
  - Pericardial effusion [Unknown]
  - Dysuria [Unknown]
  - Oliguria [Unknown]
  - Limb discomfort [Unknown]
  - Breast discomfort [Unknown]
  - Glycosylated haemoglobin abnormal [Unknown]
  - Hot flush [Unknown]
  - Musculoskeletal discomfort [Unknown]
